FAERS Safety Report 9782001 (Version 1)
Quarter: 2013Q4

REPORT INFORMATION
  Report Type: Spontaneous
  Country: RU (occurrence: RU)
  Receive Date: 20131225
  Receipt Date: 20131225
  Transmission Date: 20140711
  Serious: Yes (Other)
  Sender: FDA-Public Use
  Company Number: PHHY2013RU149529

PATIENT
  Age: 53 Year
  Sex: Female

DRUGS (3)
  1. MYFORTIC [Suspect]
     Route: 048
  2. PLAQUENIL [Concomitant]
  3. TORVACARD [Concomitant]

REACTIONS (3)
  - Skin injury [Recovered/Resolved]
  - Erythema [Recovered/Resolved]
  - Pruritus [Recovered/Resolved]
